FAERS Safety Report 11484885 (Version 3)
Quarter: 2017Q4

REPORT INFORMATION
  Report Type: Spontaneous
  Country: CA (occurrence: CA)
  Receive Date: 20150909
  Receipt Date: 20171215
  Transmission Date: 20180320
  Serious: Yes (Disabling, Other)
  Sender: FDA-Public Use
  Company Number: CA-JAZZ-2015-CA-001617

PATIENT
  Age: 49 Year
  Sex: Female

DRUGS (39)
  1. XYREM [Suspect]
     Active Substance: SODIUM OXYBATE
     Dosage: 6 G, FIRST DOSE
     Route: 048
     Dates: start: 20080220, end: 2008
  2. XYREM [Suspect]
     Active Substance: SODIUM OXYBATE
     Dosage: 4 G, FIRST DOSE
     Route: 048
     Dates: start: 20090408, end: 2009
  3. XYREM [Suspect]
     Active Substance: SODIUM OXYBATE
     Dosage: 4 G, TID
     Route: 048
     Dates: start: 20090506, end: 2010
  4. OXYCOCET [Concomitant]
     Active Substance: ACETAMINOPHEN\OXYCODONE HYDROCHLORIDE
     Indication: PRODUCT USED FOR UNKNOWN INDICATION
  5. VITAMIN D                          /00107901/ [Concomitant]
     Active Substance: ERGOCALCIFEROL
     Indication: PRODUCT USED FOR UNKNOWN INDICATION
  6. XYREM [Suspect]
     Active Substance: SODIUM OXYBATE
     Dosage: 4.5 G, BID
     Route: 048
     Dates: start: 20071107, end: 200711
  7. XYREM [Suspect]
     Active Substance: SODIUM OXYBATE
     Dosage: 5.75 G, SECOND DOSE
     Route: 048
     Dates: start: 20080305, end: 2008
  8. XYREM [Suspect]
     Active Substance: SODIUM OXYBATE
     Dosage: 5.75 G, SECOND DOSE
     Route: 048
     Dates: start: 20080409, end: 2008
  9. XYREM [Suspect]
     Active Substance: SODIUM OXYBATE
     Dosage: 5.75 G, SECOND DOSE
     Route: 048
     Dates: start: 20080604, end: 2009
  10. XYREM [Suspect]
     Active Substance: SODIUM OXYBATE
     Dosage: 3.75 G, SECOND DOSE
     Route: 048
     Dates: start: 20100224, end: 201102
  11. XYREM [Suspect]
     Active Substance: SODIUM OXYBATE
     Indication: FIBROMYALGIA
     Dosage: 2.25 G, BID
     Route: 048
     Dates: start: 20070906, end: 200709
  12. XYREM [Suspect]
     Active Substance: SODIUM OXYBATE
     Dosage: 3.75 G, BID
     Route: 048
     Dates: start: 20100130, end: 2010
  13. XYREM [Suspect]
     Active Substance: SODIUM OXYBATE
     Dosage: 4.25 G, FIRST DOSE
     Route: 048
     Dates: start: 20100224, end: 201102
  14. CIPRALEX [Concomitant]
     Active Substance: ESCITALOPRAM OXALATE
     Indication: PRODUCT USED FOR UNKNOWN INDICATION
  15. MODAFINIL. [Concomitant]
     Active Substance: MODAFINIL
     Indication: PRODUCT USED FOR UNKNOWN INDICATION
  16. XYREM [Suspect]
     Active Substance: SODIUM OXYBATE
     Dosage: 4.5 G, BID
     Route: 048
     Dates: start: 20071212, end: 2007
  17. XYREM [Suspect]
     Active Substance: SODIUM OXYBATE
     Dosage: 5.7 G, SECOND DOSE
     Route: 048
     Dates: start: 20080220, end: 2008
  18. XYREM [Suspect]
     Active Substance: SODIUM OXYBATE
     Dosage: 6.25 G, FIRST DOSE
     Route: 048
     Dates: start: 20080305, end: 2008
  19. XYREM [Suspect]
     Active Substance: SODIUM OXYBATE
     Dosage: 7 G, FIRST DOSE
     Route: 048
     Dates: start: 20080604, end: 2009
  20. XYREM [Suspect]
     Active Substance: SODIUM OXYBATE
     Dosage: 3.5 G, THIRD DOSE
     Route: 048
     Dates: start: 20090408, end: 2009
  21. TRAMADOL. [Concomitant]
     Active Substance: TRAMADOL
     Indication: PRODUCT USED FOR UNKNOWN INDICATION
     Dosage: UNK
     Dates: start: 2015
  22. VITAMIN B COMPLEX [Concomitant]
     Active Substance: CYANOCOBALAMIN\DEXPANTHENOL\NIACINAMIDE\PYRIDOXINE HYDROCHLORIDE\RIBOFLAVIN 5^-PHOSPHATE SODIUM\THIAMINE HYDROCHLORIDE\VITAMIN B COMPLEX
     Indication: PRODUCT USED FOR UNKNOWN INDICATION
  23. XYREM [Suspect]
     Active Substance: SODIUM OXYBATE
     Dosage: 2.25 G, BID
     Route: 048
     Dates: start: 20120731, end: 2012
  24. XYREM [Suspect]
     Active Substance: SODIUM OXYBATE
     Dosage: 3 G, BID
     Route: 048
     Dates: start: 20121025
  25. SYNTHROID [Concomitant]
     Active Substance: LEVOTHYROXINE SODIUM
     Indication: PRODUCT USED FOR UNKNOWN INDICATION
  26. XYREM [Suspect]
     Active Substance: SODIUM OXYBATE
     Dosage: 5.75 G, FIRST DOSE
     Route: 048
     Dates: start: 20080101, end: 2008
  27. XYREM [Suspect]
     Active Substance: SODIUM OXYBATE
     Dosage: 5 G, BID
     Route: 048
     Dates: start: 20090311, end: 2009
  28. XYREM [Suspect]
     Active Substance: SODIUM OXYBATE
     Dosage: 3.5 G, BID
     Route: 048
     Dates: start: 20100126, end: 2010
  29. TOPIRAMATE. [Concomitant]
     Active Substance: TOPIRAMATE
     Indication: PRODUCT USED FOR UNKNOWN INDICATION
  30. HYDROMORPH CONTIN [Concomitant]
     Active Substance: HYDROMORPHONE
     Indication: PRODUCT USED FOR UNKNOWN INDICATION
  31. XYREM [Suspect]
     Active Substance: SODIUM OXYBATE
     Dosage: 3 G, BID
     Route: 048
     Dates: start: 20070920, end: 200710
  32. XYREM [Suspect]
     Active Substance: SODIUM OXYBATE
     Dosage: 3.75 G, BID
     Route: 048
     Dates: start: 20071024, end: 2007
  33. XYREM [Suspect]
     Active Substance: SODIUM OXYBATE
     Dosage: 6.75 G, FIRST DOSE
     Route: 048
     Dates: start: 20080409, end: 2008
  34. XYREM [Suspect]
     Active Substance: SODIUM OXYBATE
     Dosage: 5 G, BID
     Route: 048
     Dates: start: 20071127, end: 2007
  35. XYREM [Suspect]
     Active Substance: SODIUM OXYBATE
     Dosage: 5.5 G, SECOND DOSE
     Route: 048
     Dates: start: 20080101, end: 2008
  36. XYREM [Suspect]
     Active Substance: SODIUM OXYBATE
     Dosage: 3.5 G, SECOND DOSE
     Route: 048
     Dates: start: 20090408, end: 2009
  37. XYREM [Suspect]
     Active Substance: SODIUM OXYBATE
     Dosage: 4.5 G, BID
     Route: 048
     Dates: start: 20100131, end: 2010
  38. ROSUVASTATIN. [Concomitant]
     Active Substance: ROSUVASTATIN
     Indication: PRODUCT USED FOR UNKNOWN INDICATION
  39. VENTOLIN [Concomitant]
     Active Substance: ALBUTEROL SULFATE
     Indication: PRODUCT USED FOR UNKNOWN INDICATION

REACTIONS (14)
  - Aphonia [Unknown]
  - Swelling [Unknown]
  - Pain [Unknown]
  - Loss of personal independence in daily activities [Unknown]
  - Asthenia [Unknown]
  - Ear infection [Unknown]
  - General physical health deterioration [Unknown]
  - Drug dose omission [Unknown]
  - Middle ear effusion [Unknown]
  - Insomnia [Unknown]
  - Ear discomfort [Unknown]
  - Nasopharyngitis [Unknown]
  - Abnormal sleep-related event [Unknown]
  - Product use in unapproved indication [Unknown]

NARRATIVE: CASE EVENT DATE: 201610
